FAERS Safety Report 18296185 (Version 31)
Quarter: 2025Q2

REPORT INFORMATION
  Report Type: Report from Study
  Country: US (occurrence: US)
  Receive Date: 20200922
  Receipt Date: 20250612
  Transmission Date: 20250717
  Serious: Yes (Hospitalization, Other)
  Sender: TAKEDA
  Company Number: US-SHIRE-US202030553

PATIENT
  Age: 79 Year
  Sex: Male
  Weight: 65 kg

DRUGS (51)
  1. HUMAN IMMUNOGLOBULIN G [Suspect]
     Active Substance: HUMAN IMMUNOGLOBULIN G
     Indication: Immunodeficiency common variable
     Dosage: 40 GRAM, Q4WEEKS
  2. HUMAN IMMUNOGLOBULIN G [Suspect]
     Active Substance: HUMAN IMMUNOGLOBULIN G
     Dosage: 45 GRAM, Q4WEEKS
  3. CUVITRU [Suspect]
     Active Substance: HUMAN IMMUNOGLOBULIN G
     Indication: Immunodeficiency common variable
     Dosage: 10 GRAM, 1/WEEK
     Dates: start: 20180825
  4. AMBIEN [Suspect]
     Active Substance: ZOLPIDEM TARTRATE
     Indication: Product used for unknown indication
  5. ACETAMINOPHEN\HYDROCODONE [Suspect]
     Active Substance: ACETAMINOPHEN\HYDROCODONE
     Indication: Product used for unknown indication
  6. DIPHENHYDRAMINE [Concomitant]
     Active Substance: DIPHENHYDRAMINE
  7. MAGNESIUM [Concomitant]
     Active Substance: MAGNESIUM
  8. ZOLPIDEM TARTRATE [Concomitant]
     Active Substance: ZOLPIDEM TARTRATE
  9. FUROSEMIDE [Concomitant]
     Active Substance: FUROSEMIDE
  10. EPINEPHRINE [Concomitant]
     Active Substance: EPINEPHRINE
  11. SODIUM CHLORIDE [Concomitant]
     Active Substance: SODIUM CHLORIDE
  12. FLUTICASONE PROPIONATE [Concomitant]
     Active Substance: FLUTICASONE PROPIONATE
  13. ACETAMINOPHEN [Concomitant]
     Active Substance: ACETAMINOPHEN
  14. TYLENOL EXTRA STRENGTH [Concomitant]
     Active Substance: ACETAMINOPHEN
  15. AMLODIPINE;ATORVASTATIN [Concomitant]
  16. ELIQUIS [Concomitant]
     Active Substance: APIXABAN
     Indication: Product used for unknown indication
  17. ASPIRIN [Concomitant]
     Active Substance: ASPIRIN
     Indication: Product used for unknown indication
  18. MONTELUKAST SODIUM [Concomitant]
     Active Substance: MONTELUKAST SODIUM
  19. LISINOPRIL [Concomitant]
     Active Substance: LISINOPRIL
     Indication: Product used for unknown indication
  20. OMEPRAZOLE [Concomitant]
     Active Substance: OMEPRAZOLE
  21. TIKOSYN [Concomitant]
     Active Substance: DOFETILIDE
  22. AMOXICILLIN [Concomitant]
     Active Substance: AMOXICILLIN
     Indication: Product used for unknown indication
  23. SINGULAIR [Concomitant]
     Active Substance: MONTELUKAST SODIUM
     Indication: Product used for unknown indication
  24. DOXYCYCLINE [Concomitant]
     Active Substance: DOXYCYCLINE
     Indication: Product used for unknown indication
  25. DOFETILIDE [Concomitant]
     Active Substance: DOFETILIDE
     Indication: Product used for unknown indication
  26. FLONASE [Concomitant]
     Active Substance: FLUTICASONE PROPIONATE
     Indication: Product used for unknown indication
  27. PREDNISONE [Concomitant]
     Active Substance: PREDNISONE
     Indication: Inflammation
  28. AMLODIPINE BESYLATE [Concomitant]
     Active Substance: AMLODIPINE BESYLATE
  29. MODERNA COVID-19 VACCINE [Concomitant]
     Active Substance: ELASOMERAN
     Indication: Product used for unknown indication
  30. ENTRESTO [Concomitant]
     Active Substance: SACUBITRIL\VALSARTAN
  31. SERTRALINE HYDROCHLORIDE [Concomitant]
     Active Substance: SERTRALINE HYDROCHLORIDE
  32. CELECOXIB [Concomitant]
     Active Substance: CELECOXIB
  33. SPIRONOLACTONE [Concomitant]
     Active Substance: SPIRONOLACTONE
  34. DIPHENHYDRAMINE HYDROCHLORIDE [Concomitant]
     Active Substance: DIPHENHYDRAMINE HYDROCHLORIDE
  35. METOPROLOL SUCCINATE [Concomitant]
     Active Substance: METOPROLOL SUCCINATE
  36. MELOXICAM [Concomitant]
     Active Substance: MELOXICAM
  37. DOXYCYCLINE HYCLATE [Concomitant]
     Active Substance: DOXYCYCLINE HYCLATE
  38. GABAPENTIN [Concomitant]
     Active Substance: GABAPENTIN
  39. ATORVASTATIN [Concomitant]
     Active Substance: ATORVASTATIN
  40. ERYTHROMYCIN [Concomitant]
     Active Substance: ERYTHROMYCIN
  41. ATORVASTATIN CALCIUM [Concomitant]
     Active Substance: ATORVASTATIN CALCIUM
  42. SYSTANE (HYPROMELLOSE 2910 (4000 MPA.S)) [Concomitant]
     Active Substance: HYPROMELLOSE 2910 (4000 MPA.S)
  43. ALDACTONE [Concomitant]
     Active Substance: SPIRONOLACTONE
  44. ADVIL [Concomitant]
     Active Substance: IBUPROFEN
  45. TAMSULOSIN HYDROCHLORIDE [Concomitant]
     Active Substance: TAMSULOSIN HYDROCHLORIDE
  46. TOPROL XL [Concomitant]
     Active Substance: METOPROLOL SUCCINATE
  47. CYMBALTA [Concomitant]
     Active Substance: DULOXETINE HYDROCHLORIDE
  48. METAMUCIL [Concomitant]
     Active Substance: PLANTAGO SEED
  49. SACCHAROMYCES CEREVISIAE [Concomitant]
     Active Substance: SACCHAROMYCES CEREVISIAE
  50. POLYETHYLENE GLYCOL [Concomitant]
     Active Substance: POLYETHYLENE GLYCOL
  51. ONDANSETRON HYDROCHLORIDE [Concomitant]
     Active Substance: ONDANSETRON HYDROCHLORIDE

REACTIONS (25)
  - COVID-19 pneumonia [Unknown]
  - Road traffic accident [Unknown]
  - Atrial fibrillation [Unknown]
  - Arrhythmia [Unknown]
  - Lumbar vertebral fracture [Unknown]
  - Hypertension [Unknown]
  - Headache [Unknown]
  - Constipation [Unknown]
  - Gait disturbance [Unknown]
  - Osteoarthritis [Unknown]
  - COVID-19 [Recovering/Resolving]
  - Poor venous access [Unknown]
  - Decubitus ulcer [Unknown]
  - Fall [Unknown]
  - Disorientation [Unknown]
  - Limb injury [Unknown]
  - Skin abrasion [Unknown]
  - Abdominal discomfort [Unknown]
  - Contusion [Unknown]
  - Conjunctivitis [Unknown]
  - Blood pressure increased [Unknown]
  - Dyspnoea [Unknown]
  - Back pain [Recovered/Resolved]
  - Fatigue [Unknown]
  - Mobility decreased [Unknown]

NARRATIVE: CASE EVENT DATE: 20221228
